FAERS Safety Report 10662236 (Version 1)
Quarter: 2014Q4

REPORT INFORMATION
  Report Type: Spontaneous
  Country: US (occurrence: US)
  Receive Date: 20141218
  Receipt Date: 20141218
  Transmission Date: 20150529
  Serious: Yes (Other)
  Sender: FDA-Public Use
  Company Number: US-PFIZER INC-2014345910

PATIENT
  Sex: Male

DRUGS (2)
  1. GLUCOTROL [Suspect]
     Active Substance: GLIPIZIDE
     Dosage: UNK
  2. GLUCOTROL XL [Suspect]
     Active Substance: GLIPIZIDE
     Dosage: UNK

REACTIONS (3)
  - Diabetes mellitus inadequate control [Unknown]
  - Blood glucose increased [Unknown]
  - Product physical issue [Unknown]
